FAERS Safety Report 19375360 (Version 4)
Quarter: 2021Q3

REPORT INFORMATION
  Report Type: Spontaneous
  Country: CO (occurrence: CO)
  Receive Date: 20210604
  Receipt Date: 20210913
  Transmission Date: 20211014
  Serious: Yes (Hospitalization, Other)
  Sender: FDA-Public Use
  Company Number: CO-PFIZER INC-2021598481

PATIENT
  Age: 61 Year
  Sex: Female

DRUGS (1)
  1. TRASTUZUMAB. [Suspect]
     Active Substance: TRASTUZUMAB
     Indication: BREAST CANCER
     Dosage: 440 MG
     Dates: end: 20210325

REACTIONS (5)
  - Dehydration [Unknown]
  - Decreased immune responsiveness [Unknown]
  - Brain injury [Unknown]
  - Blood potassium decreased [Unknown]
  - Malaise [Unknown]

NARRATIVE: CASE EVENT DATE: 2019
